FAERS Safety Report 9412264 (Version 1)
Quarter: 2013Q2

REPORT INFORMATION
  Report Type: Spontaneous
  Country: CA (occurrence: None)
  Receive Date: 20130418
  Receipt Date: 20130418
  Transmission Date: 20140414
  Serious: Yes (Hospitalization)
  Sender: FDA-Public Use
  Company Number: 2005US-00726

PATIENT
  Age: 50 Year
  Sex: Male

DRUGS (3)
  1. PSEUDOEPHEDRINE [Suspect]
     Indication: SINUS CONGESTION
  2. TYLENOL SINUS (ACETAMINOPHEN AND PHENYLEPHRINE HYDROCHLORIDE) CAPSULE [Concomitant]
  3. FLONASE (FLUTICASONE PROPIONATE) [Concomitant]

REACTIONS (5)
  - Cerebral haemorrhage [None]
  - Deep vein thrombosis [None]
  - Pulmonary embolism [None]
  - Grand mal convulsion [None]
  - Deep vein thrombosis [None]
